FAERS Safety Report 6655969-1 (Version None)
Quarter: 2010Q1

REPORT INFORMATION
  Report Type: 
  Country: None (occurrence: None)
  Receive Date: 20100329
  Receipt Date: 20100324
  Transmission Date: 20100710
  Serious: Yes (Life-Threatening)
  Sender: FDA-Public Use
  Company Number: PHHY2010ES16666

PATIENT
  Age: 61 Year
  Sex: Male

DRUGS (11)
  1. RASILEZ [Suspect]
     Indication: HYPERTENSION
     Dosage: 150 MG, QD
     Route: 048
     Dates: start: 20091201, end: 20100108
  2. ALLOPURINOL [Suspect]
     Dosage: 300 (UNITS NOT SPECIFIED)
  3. NEBIVOLOL HCL [Concomitant]
     Dosage: 5 MG, UNK
  4. DIOVAN [Concomitant]
     Dosage: 320 (UNITS NOT SPECIFIED)
  5. ESERTIA [Concomitant]
  6. IDALPREM [Concomitant]
  7. SUTRIL [Concomitant]
  8. OMEPRAZOLE [Concomitant]
  9. OMACOR [Concomitant]
  10. EUCREAS [Concomitant]
     Indication: DIABETES MELLITUS
     Dosage: 50/100 (UNITS NOT SPECIFIED)
  11. EZETROL [Concomitant]

REACTIONS (13)
  - ASTHENIA [None]
  - BLISTER [None]
  - BLOOD POTASSIUM INCREASED [None]
  - BLOOD SODIUM DECREASED [None]
  - DECREASED APPETITE [None]
  - DRUG RASH WITH EOSINOPHILIA AND SYSTEMIC SYMPTOMS [None]
  - ELECTROCARDIOGRAM T WAVE ABNORMAL [None]
  - EOSINOPHIL COUNT INCREASED [None]
  - GAIT DISTURBANCE [None]
  - HAEMOGLOBIN DECREASED [None]
  - MYALGIA [None]
  - RENAL FAILURE ACUTE [None]
  - SKIN DISORDER [None]
